FAERS Safety Report 12907715 (Version 1)
Quarter: 2016Q4

REPORT INFORMATION
  Report Type: Spontaneous
  Country: US (occurrence: US)
  Receive Date: 20161103
  Receipt Date: 20161103
  Transmission Date: 20170207
  Serious: Yes (Other)
  Sender: FDA-Public Use
  Company Number: US-BAYER-2016-206838

PATIENT
  Age: 51 Year
  Sex: Female

DRUGS (8)
  1. CALCIUM CARBONATE. [Suspect]
     Active Substance: CALCIUM CARBONATE
     Indication: EPIGASTRIC DISCOMFORT
     Dosage: 3-4 GRAMS, QD
  2. DIGOXIN. [Concomitant]
     Active Substance: DIGOXIN
  3. SPIRONOLACTONE. [Concomitant]
     Active Substance: SPIRONOLACTONE
  4. ASPIRIN. [Concomitant]
     Active Substance: ASPIRIN
  5. QUETIAPINE. [Concomitant]
     Active Substance: QUETIAPINE
  6. LISINOPRIL. [Concomitant]
     Active Substance: LISINOPRIL
  7. CARVEDILOL. [Concomitant]
     Active Substance: CARVEDILOL
  8. LITHIUM. [Concomitant]
     Active Substance: LITHIUM

REACTIONS (1)
  - Milk-alkali syndrome [None]
